FAERS Safety Report 7110202-1 (Version None)
Quarter: 2010Q4

REPORT INFORMATION
  Report Type: 
  Country: None (occurrence: None)
  Receive Date: 20101112
  Receipt Date: 20101027
  Transmission Date: 20110411
  Serious: Yes (Hospitalization)
  Sender: FDA-Public Use
  Company Number: 1-18184685

PATIENT
  Age: 65 Year
  Sex: Female
  Weight: 45.3597 kg

DRUGS (21)
  1. QUININE SULFATE [Suspect]
     Indication: MUSCLE SPASMS
     Dosage: AS NEEDED, ORAL
     Route: 048
     Dates: start: 20040101, end: 20070101
  2. OXYCONTIN [Suspect]
     Dosage: ORAL
     Route: 048
  3. ABILIFY [Concomitant]
  4. ALPRAZOLAM [Concomitant]
  5. AVAPRO [Concomitant]
  6. CITRACAL [Concomitant]
  7. FORTEO [Concomitant]
  8. MAGNESIUM GLUCONATE [Concomitant]
  9. REMERON [Concomitant]
  10. OXYCODONE HCL [Concomitant]
  11. PRILOSEC [Concomitant]
  12. TICLOPIDINE HCL [Concomitant]
  13. TOPROL-XL [Concomitant]
  14. ENALAPRIL [Concomitant]
  15. NORVASC [Concomitant]
  16. CELEXA [Concomitant]
  17. TRAZODONE [Concomitant]
  18. AMBIEN [Concomitant]
  19. COUMADIN [Concomitant]
  20. XANAX [Concomitant]
  21. VITAMIN D SUBQ PEN INJECTOR [Concomitant]

REACTIONS (22)
  - ANAEMIA [None]
  - ANXIETY [None]
  - ARTHRITIS [None]
  - BLADDER OBSTRUCTION [None]
  - CHEST PAIN [None]
  - CONDITION AGGRAVATED [None]
  - CONSTIPATION [None]
  - DEPRESSION [None]
  - GOUT [None]
  - ILEUS [None]
  - INFECTION [None]
  - LEGAL PROBLEM [None]
  - MULTIPLE INJURIES [None]
  - NAUSEA [None]
  - NERVOUSNESS [None]
  - PAIN IN EXTREMITY [None]
  - PULMONARY EMBOLISM [None]
  - RENAL FAILURE CHRONIC [None]
  - RENOVASCULAR HYPERTENSION [None]
  - ROAD TRAFFIC ACCIDENT [None]
  - SMALL INTESTINAL OBSTRUCTION [None]
  - UNEVALUABLE EVENT [None]
